FAERS Safety Report 7037243-7 (Version None)
Quarter: 2010Q4

REPORT INFORMATION
  Report Type: 
  Country: None (occurrence: None)
  Receive Date: 20101011
  Receipt Date: 20101005
  Transmission Date: 20110411
  Serious: Yes (Hospitalization)
  Sender: FDA-Public Use
  Company Number: FR-ROCHE-731369

PATIENT
  Sex: Male

DRUGS (7)
  1. ROCEPHIN [Suspect]
     Indication: PROPHYLAXIS
     Route: 042
     Dates: start: 20100809, end: 20100816
  2. COUMADIN [Suspect]
     Indication: DEEP VEIN THROMBOSIS
     Dosage: FORM: DIVISIBLE TABLET, LONG-TERM TREATMENT.
     Route: 048
     Dates: end: 20100814
  3. GENTAMICINE [Suspect]
     Indication: PROPHYLAXIS
     Route: 042
     Dates: start: 20100809, end: 20100816
  4. CITALOPRAM HYDROBROMIDE [Suspect]
     Indication: PRODUCT USED FOR UNKNOWN INDICATION
     Dosage: DRUG: CITALOPRAM BASE, LONG TERM TREATMENT.
     Route: 048
  5. CIPROFLOXACIN HCL [Suspect]
     Indication: PRODUCT USED FOR UNKNOWN INDICATION
     Route: 048
     Dates: start: 20100812
  6. DIFFU-K [Concomitant]
     Dosage: LONG-TERM TREATMENT
     Route: 048
  7. RISPERDAL [Concomitant]
     Dosage: FORM: DIVISIBLE COATED TABLET, LONG TERM TREATMENT.
     Route: 048

REACTIONS (3)
  - HAEMATURIA [None]
  - HAEMORRHAGE [None]
  - INTERNATIONAL NORMALISED RATIO INCREASED [None]
